FAERS Safety Report 16483302 (Version 1)
Quarter: 2019Q2

REPORT INFORMATION
  Report Type: Spontaneous
  Country: US (occurrence: US)
  Receive Date: 20190515
  Receipt Date: 20190515
  Transmission Date: 20190711
  Serious: Yes (Life-Threatening, Hospitalization, Other)
  Sender: FDA-Public Use
  Company Number: None

PATIENT
  Age: 72 Year
  Sex: Male

DRUGS (2)
  1. HEPARIN [Suspect]
     Active Substance: HEPARIN SODIUM
     Indication: ATRIAL FIBRILLATION
     Dosage: ?          OTHER FREQUENCY:SLIDING SCALE;?
     Route: 042
     Dates: start: 20190221, end: 20190226
  2. APIXABAN [Suspect]
     Active Substance: APIXABAN
     Route: 048
     Dates: start: 20190226, end: 20190228

REACTIONS (2)
  - Haemorrhage [None]
  - Epistaxis [None]

NARRATIVE: CASE EVENT DATE: 20190301
